FAERS Safety Report 9123573 (Version 1)
Quarter: 2013Q1

REPORT INFORMATION
  Report Type: Spontaneous
  Country: SG (occurrence: SG)
  Receive Date: 20130227
  Receipt Date: 20130227
  Transmission Date: 20140127
  Serious: Yes (Other)
  Sender: FDA-Public Use
  Company Number: SG-BAYER-2013-024627

PATIENT
  Age: 47 Year
  Sex: Female

DRUGS (1)
  1. ACARBOSE [Suspect]

REACTIONS (1)
  - Abdominal distension [Unknown]
